FAERS Safety Report 9982648 (Version 2)
Quarter: 2014Q1

REPORT INFORMATION
  Report Type: Report from Study
  Country: US (occurrence: US)
  Receive Date: 20140307
  Receipt Date: 20140307
  Transmission Date: 20141002
  Serious: No
  Sender: FDA-Public Use
  Company Number: US-ABBVIE-13P-163-1168825-00

PATIENT
  Age: 49 Year
  Sex: Female

DRUGS (10)
  1. HUMIRA [Suspect]
     Indication: CROHN^S DISEASE
     Dates: start: 20131107, end: 20131107
  2. HUMIRA [Suspect]
     Dates: start: 20131108, end: 20131108
  3. HUMIRA [Suspect]
  4. CYMBALTA [Concomitant]
     Indication: DEPRESSION
  5. NEXIUM [Concomitant]
     Indication: GASTROOESOPHAGEAL REFLUX DISEASE
  6. ATIVAN [Concomitant]
     Indication: ANXIETY
  7. BENTYL [Concomitant]
     Indication: GASTROINTESTINAL PAIN
  8. PROMETHAZINE [Concomitant]
     Indication: NAUSEA
  9. GABAPENTIN [Concomitant]
     Indication: SCIATICA
  10. FLEXERIL [Concomitant]
     Indication: SCIATICA

REACTIONS (2)
  - Injection site pain [Not Recovered/Not Resolved]
  - Injection site pain [Recovered/Resolved]
